FAERS Safety Report 9026263 (Version 1)
Quarter: 2012Q4

REPORT INFORMATION
  Report Type: Spontaneous
  Country: US (occurrence: None)
  Receive Date: 20121214
  Receipt Date: 20121214
  Transmission Date: 20130627
  Serious: No
  Sender: FDA-Public Use
  Company Number: None

PATIENT
  Age: 27 Year
  Sex: Female
  Weight: 56.7 kg

DRUGS (1)
  1. ENOXAPARIN [Suspect]
     Dosage: Subcu
     Route: 058

REACTIONS (2)
  - Injury associated with device [None]
  - Device failure [None]
